FAERS Safety Report 9338900 (Version 1)
Quarter: 2013Q2

REPORT INFORMATION
  Report Type: Spontaneous
  Country: US (occurrence: None)
  Receive Date: 20130606
  Receipt Date: 20130606
  Transmission Date: 20140414
  Serious: Yes (Hospitalization)
  Sender: FDA-Public Use
  Company Number: None

PATIENT
  Age: 84 Year
  Sex: Male
  Weight: 74.3 kg

DRUGS (2)
  1. WARFARIN [Suspect]
     Indication: ATRIAL FIBRILLATION
     Route: 048
     Dates: start: 20020608, end: 20130604
  2. SALSALATE [Suspect]
     Route: 048
     Dates: start: 20121210, end: 20130523

REACTIONS (2)
  - International normalised ratio abnormal [None]
  - Toxicity to various agents [None]
